FAERS Safety Report 16154349 (Version 4)
Quarter: 2020Q1

REPORT INFORMATION
  Report Type: Report from Study
  Country: US (occurrence: US)
  Receive Date: 20190403
  Receipt Date: 20200226
  Transmission Date: 20200409
  Serious: Yes (Hospitalization)
  Sender: FDA-Public Use
  Company Number: US-ACTELION-A-NJ2019-188498

PATIENT
  Age: 67 Year
  Sex: Female

DRUGS (2)
  1. OPSUMIT [Suspect]
     Active Substance: MACITENTAN
     Indication: PULMONARY ARTERIAL HYPERTENSION
     Dosage: 10 MG, QD
     Route: 048
  2. LASIX [Concomitant]
     Active Substance: FUROSEMIDE

REACTIONS (12)
  - Hypoxia [Unknown]
  - Catheterisation cardiac abnormal [Unknown]
  - Syncope [Unknown]
  - Dyspnoea [Not Recovered/Not Resolved]
  - Dyspnoea exertional [Unknown]
  - Heart rate increased [Unknown]
  - Weight increased [Unknown]
  - Malaise [Unknown]
  - Influenza [Unknown]
  - Pneumonia [Unknown]
  - Fluid retention [Unknown]
  - Oedema peripheral [Unknown]

NARRATIVE: CASE EVENT DATE: 201911
